FAERS Safety Report 19685070 (Version 1)
Quarter: 2021Q3

REPORT INFORMATION
  Report Type: Spontaneous
  Country: US (occurrence: US)
  Receive Date: 20210811
  Receipt Date: 20210811
  Transmission Date: 20211014
  Serious: No
  Sender: FDA-Public Use
  Company Number: None

PATIENT
  Age: 44 Year
  Sex: Male
  Weight: 90 kg

DRUGS (1)
  1. REGEN?COV [Suspect]
     Active Substance: CASIRIVIMAB\IMDEVIMAB
     Indication: COVID-19
     Route: 042

REACTIONS (6)
  - Fatigue [None]
  - Chills [None]
  - Headache [None]
  - Productive cough [None]
  - Pyrexia [None]
  - Condition aggravated [None]

NARRATIVE: CASE EVENT DATE: 20210805
